FAERS Safety Report 17928614 (Version 1)
Quarter: 2020Q2

REPORT INFORMATION
  Report Type: Spontaneous
  Country: US (occurrence: US)
  Receive Date: 20200622
  Receipt Date: 20200622
  Transmission Date: 20200714
  Serious: Yes (Hospitalization)
  Sender: FDA-Public Use
  Company Number: None

PATIENT
  Age: 67 Year
  Sex: Male

DRUGS (1)
  1. SPIRONOLACTONE (SPIRONOLACTONE 50MG TAB) [Suspect]
     Active Substance: SPIRONOLACTONE
     Indication: ASCITES
     Route: 048
     Dates: start: 20191027, end: 20191205

REACTIONS (2)
  - Electrocardiogram change [None]
  - Hyperkalaemia [None]

NARRATIVE: CASE EVENT DATE: 20200311
